FAERS Safety Report 5332130-4 (Version None)
Quarter: 2007Q2

REPORT INFORMATION
  Report Type: 
  Country: None (occurrence: None)
  Receive Date: 20070518
  Receipt Date: 20070503
  Transmission Date: 20071010
  Serious: Yes (Hospitalization)
  Sender: FDA-Public Use
  Company Number: 2007000806

PATIENT
  Age: 61 Year
  Sex: Female
  Weight: 64 kg

DRUGS (3)
  1. ERLOTINIB(TABLET) (ERLOTINIB HCI) [Suspect]
     Indication: NON-SMALL CELL LUNG CANCER
     Dosage: 150 MG (QD), ORAL
     Route: 048
     Dates: start: 20061222, end: 20070420
  2. PACLITAXEL [Suspect]
     Dosage: 200 MG/M2, INTRAVENOUS
     Route: 042
     Dates: start: 20061222
  3. CARBOPLATIN [Suspect]
     Dosage: AUC 6, INTRAVENOUS
     Route: 042
     Dates: start: 20061222

REACTIONS (7)
  - BLOOD CALCIUM DECREASED [None]
  - BLOOD CREATININE INCREASED [None]
  - BLOOD PHOSPHORUS INCREASED [None]
  - DIARRHOEA [None]
  - FEBRILE NEUTROPENIA [None]
  - HAEMOGLOBIN DECREASED [None]
  - HYPOKALAEMIA [None]
